FAERS Safety Report 5777336-5 (Version None)
Quarter: 2008Q2

REPORT INFORMATION
  Report Type: 
  Country: None (occurrence: None)
  Receive Date: 20080618
  Receipt Date: 20080610
  Transmission Date: 20081010
  Serious: Yes (Disabling)
  Sender: FDA-Public Use
  Company Number: PHHY2008GB10819

PATIENT
  Age: 14 Year
  Sex: Female

DRUGS (2)
  1. DIOVAN [Suspect]
     Indication: HYPERTENSION
  2. AMIAS [Suspect]
     Indication: HYPERTENSION

REACTIONS (2)
  - HAIR GROWTH ABNORMAL [None]
  - PRURITUS GENERALISED [None]
